APPROVED DRUG PRODUCT: CEFDINIR
Active Ingredient: CEFDINIR
Strength: 300MG
Dosage Form/Route: CAPSULE;ORAL
Application: A210220 | Product #001 | TE Code: AB
Applicant: ALKEM LABORATORIES LTD
Approved: Feb 19, 2021 | RLD: No | RS: No | Type: RX